FAERS Safety Report 5486167-5 (Version None)
Quarter: 2007Q4

REPORT INFORMATION
  Report Type: 
  Country: None (occurrence: None)
  Receive Date: 20071012
  Receipt Date: 20070907
  Transmission Date: 20080405
  Serious: Yes (Other)
  Sender: FDA-Public Use
  Company Number: STI-2007-01528

PATIENT
  Age: 64 Year
  Sex: Female

DRUGS (2)
  1. BETAMETHASONE VALERATE [Suspect]
     Indication: DERMATITIS
     Dosage: NASOLABIAL FOLDS
  2. WEAK TO MEDIUM STRENGTH CORTICOSTEROIDS (CORTICOSTEROIDS) [Suspect]
     Indication: DERMATITIS

REACTIONS (7)
  - BURNING SENSATION [None]
  - DERMATITIS CONTACT [None]
  - DRUG DEPENDENCE [None]
  - ERYTHEMA [None]
  - PAIN [None]
  - RASH [None]
  - STEROID WITHDRAWAL SYNDROME [None]
